FAERS Safety Report 26028891 (Version 3)
Quarter: 2025Q4

REPORT INFORMATION
  Report Type: Report from Study
  Country: US (occurrence: US)
  Receive Date: 20251112
  Receipt Date: 20251126
  Transmission Date: 20260117
  Serious: Yes (Other)
  Sender: SANDOZ
  Company Number: US-SANDOZ-SDZ2025US083077

PATIENT
  Sex: Male

DRUGS (1)
  1. GLATOPA [Suspect]
     Active Substance: GLATIRAMER ACETATE
     Indication: Multiple sclerosis
     Dosage: 40 MG, EVERY 48 HOURS
     Route: 058
     Dates: start: 20251103

REACTIONS (12)
  - Thyroid cancer [Unknown]
  - Headache [Unknown]
  - Muscle tightness [Unknown]
  - Hangover [Recovered/Resolved]
  - Pallor [Recovered/Resolved]
  - Nervousness [Recovered/Resolved]
  - Chest pain [Unknown]
  - Injection site bruising [Unknown]
  - Exposure via skin contact [Unknown]
  - Incorrect dose administered [Unknown]
  - Product administration error [Unknown]
  - Wrong technique in device usage process [Unknown]
